FAERS Safety Report 15714793 (Version 1)
Quarter: 2018Q4

REPORT INFORMATION
  Report Type: Spontaneous
  Country: US (occurrence: US)
  Receive Date: 20181212
  Receipt Date: 20181212
  Transmission Date: 20190205
  Serious: No
  Sender: FDA-Public Use
  Company Number: None

PATIENT
  Age: 25 Year
  Sex: Male
  Weight: 76.5 kg

DRUGS (1)
  1. PRILOSEC [Suspect]
     Active Substance: OMEPRAZOLE MAGNESIUM
     Indication: DYSPEPSIA
     Dosage: ?          QUANTITY:1 TABLET(S);?
     Route: 048
     Dates: start: 20101111, end: 20110801

REACTIONS (7)
  - Incorrect dose administered [None]
  - Aphasia [None]
  - Rash [None]
  - Dysphagia [None]
  - Dry skin [None]
  - Arthralgia [None]
  - Oropharyngeal pain [None]

NARRATIVE: CASE EVENT DATE: 20110801
